FAERS Safety Report 14553783 (Version 3)
Quarter: 2018Q2

REPORT INFORMATION
  Report Type: Report from Study
  Country: AU (occurrence: AU)
  Receive Date: 20180220
  Receipt Date: 20180530
  Transmission Date: 20180711
  Serious: Yes (Hospitalization, Other)
  Sender: FDA-Public Use
  Company Number: PHHY2018AU023540

PATIENT
  Sex: Female

DRUGS (17)
  1. COSENTYX [Suspect]
     Active Substance: SECUKINUMAB
     Indication: PSORIATIC ARTHROPATHY
     Dosage: 150 MG, QW
     Route: 058
     Dates: start: 20180122
  2. ARAVA [Suspect]
     Active Substance: LEFLUNOMIDE
     Indication: PSORIASIS
  3. STELARA [Suspect]
     Active Substance: USTEKINUMAB
     Indication: PSORIASIS
     Route: 065
  4. NORSPAN [Suspect]
     Active Substance: BUPRENORPHINE
     Indication: PRODUCT USED FOR UNKNOWN INDICATION
     Route: 065
  5. ENDEP [Concomitant]
     Active Substance: AMITRIPTYLINE HYDROCHLORIDE
     Indication: PAIN
     Dosage: 50 MG, QD (AT NIGHT)
     Route: 048
  6. ARAVA [Suspect]
     Active Substance: LEFLUNOMIDE
     Indication: PSORIATIC ARTHROPATHY
     Dosage: 20 MG, QD
     Route: 048
  7. HUMIRA [Suspect]
     Active Substance: ADALIMUMAB
     Indication: PSORIASIS
     Dosage: ONCE PER FORNIGHT
     Route: 065
  8. SIMPONI [Suspect]
     Active Substance: GOLIMUMAB
     Indication: PSORIASIS
     Route: 065
  9. COSENTYX [Suspect]
     Active Substance: SECUKINUMAB
     Indication: PSORIASIS
  10. METHOTREXATE. [Suspect]
     Active Substance: METHOTREXATE
     Indication: PSORIATIC ARTHROPATHY
     Dosage: 20 MG, QW
     Route: 048
  11. METHOTREXATE. [Suspect]
     Active Substance: METHOTREXATE
     Indication: PSORIASIS
  12. MOBIC [Suspect]
     Active Substance: MELOXICAM
     Indication: MASS
     Route: 065
  13. NEXIUM [Concomitant]
     Active Substance: ESOMEPRAZOLE MAGNESIUM
     Indication: REFLUX GASTRITIS
     Dosage: 20 MG, QD
     Route: 048
  14. LEXAPRO [Concomitant]
     Active Substance: ESCITALOPRAM OXALATE
     Indication: DEPRESSION
     Dosage: 20 MG, QD
     Route: 048
  15. MERSYNDOL [Concomitant]
     Indication: PAIN
     Dosage: UNK UNK, PRN
     Route: 065
  16. TRAMADOL. [Suspect]
     Active Substance: TRAMADOL
     Indication: PAIN
     Route: 065
  17. ENBREL [Suspect]
     Active Substance: ETANERCEPT
     Indication: PSORIASIS
     Route: 065

REACTIONS (27)
  - Nightmare [Unknown]
  - Dyskinesia [Unknown]
  - Blood pressure increased [Unknown]
  - Hepatitis [Unknown]
  - Nausea [Unknown]
  - Pallor [Unknown]
  - Headache [Unknown]
  - Mass [Unknown]
  - Fatigue [Unknown]
  - Heart rate increased [Unknown]
  - Myocardial infarction [Unknown]
  - Insomnia [Unknown]
  - Intervertebral disc protrusion [Unknown]
  - Vertigo [Unknown]
  - Syncope [Unknown]
  - Abdominal discomfort [Unknown]
  - Bursitis [Unknown]
  - Anger [Unknown]
  - Palpitations [Unknown]
  - Hyperhidrosis [Unknown]
  - Formication [Unknown]
  - Discomfort [Unknown]
  - Frustration tolerance decreased [Unknown]
  - Prescribed underdose [Unknown]
  - Malaise [Unknown]
  - Arthritis [Unknown]
  - Drug ineffective [Unknown]
